FAERS Safety Report 4555417-1 (Version None)
Quarter: 2005Q1

REPORT INFORMATION
  Report Type: 
  Country: None (occurrence: None)
  Receive Date: 20050119
  Receipt Date: 20041231
  Transmission Date: 20050727
  Serious: Yes (Hospitalization)
  Sender: FDA-Public Use
  Company Number: PHBS2004IT17451

PATIENT
  Age: 31 Year
  Sex: Male

DRUGS (1)
  1. TORECAN [Suspect]
     Indication: NAUSEA
     Dosage: 6.5 MG/DAY
     Route: 054
     Dates: start: 20041227, end: 20041227

REACTIONS (1)
  - HALLUCINATION, VISUAL [None]
